FAERS Safety Report 6927902-6 (Version None)
Quarter: 2010Q3

REPORT INFORMATION
  Report Type: 
  Country: None (occurrence: None)
  Receive Date: 20100817
  Receipt Date: 20100805
  Transmission Date: 20110219
  Serious: Yes (Hospitalization)
  Sender: FDA-Public Use
  Company Number: GB-ELI_LILLY_AND_COMPANY-GB201008003300

PATIENT
  Sex: Female

DRUGS (3)
  1. FLUOXETINE [Suspect]
     Indication: DEPRESSION
     Dosage: 20 MG, DAILY (1/D)
     Route: 065
     Dates: start: 20100601
  2. FLUOXETINE [Suspect]
     Dosage: 10 MG, DAILY (1/D)
     Route: 065
     Dates: end: 20100805
  3. MULTI-VITAMIN [Concomitant]
     Dosage: UNK, UNKNOWN
     Route: 065

REACTIONS (2)
  - DRUG INEFFECTIVE [None]
  - HOSPITALISATION [None]
